FAERS Safety Report 10023827 (Version 1)
Quarter: 2014Q1

REPORT INFORMATION
  Report Type: Spontaneous
  Country: US (occurrence: None)
  Receive Date: 20140319
  Receipt Date: 20140319
  Transmission Date: 20141002
  Serious: Yes (Other)
  Sender: FDA-Public Use
  Company Number: None

PATIENT
  Age: 65 Year
  Sex: Female
  Weight: 87.09 kg

DRUGS (8)
  1. BROVANA [Suspect]
     Indication: DYSPNOEA
     Dosage: 1 VIAL WITH RUBICORT, NEBULIZER
     Dates: start: 20140227, end: 20140301
  2. CLONIDINE [Concomitant]
  3. DALIRESP [Concomitant]
  4. THEOPHYLLINE [Concomitant]
  5. MEDROXYPROGESTERONE [Concomitant]
  6. LOVASTATIN [Concomitant]
  7. FERROUS SULFATE [Concomitant]
  8. NATIGEN LA [Concomitant]

REACTIONS (4)
  - Tremor [None]
  - Migraine [None]
  - Insomnia [None]
  - Dyspnoea [None]
